FAERS Safety Report 6474364-1 (Version None)
Quarter: 2009Q4

REPORT INFORMATION
  Report Type: 
  Country: None (occurrence: None)
  Receive Date: 20091123
  Receipt Date: 20090731
  Transmission Date: 20100525
  Serious: No
  Sender: FDA-Public Use
  Company Number: 8049727

PATIENT
  Age: 39 Year
  Sex: Female
  Weight: 113.6 kg

DRUGS (2)
  1. CIMZIA [Suspect]
     Indication: CROHN'S DISEASE
     Dosage: 400 MG SC
     Route: 058
     Dates: start: 20090628
  2. DEPO-PROVERA [Concomitant]

REACTIONS (4)
  - ABDOMINAL PAIN [None]
  - DIARRHOEA [None]
  - MUSCULOSKELETAL STIFFNESS [None]
  - NASOPHARYNGITIS [None]
